FAERS Safety Report 4969396-6 (Version None)
Quarter: 2006Q2

REPORT INFORMATION
  Report Type: 
  Country: None (occurrence: None)
  Receive Date: 20060405
  Receipt Date: 20060323
  Transmission Date: 20061013
  Serious: Yes (Other)
  Sender: FDA-Public Use
  Company Number: 2006-DE-01554GD

PATIENT
  Sex: 0

DRUGS (1)
  1. MORPHINE [Suspect]
     Dosage: IU
     Route: 015

REACTIONS (15)
  - BRAIN HYPOXIA [None]
  - CEREBRAL VASOCONSTRICTION [None]
  - CEREBRAL VENTRICLE DILATATION [None]
  - DEVELOPMENTAL DELAY [None]
  - DRUG EXPOSURE DURING PREGNANCY [None]
  - FOETAL DISORDER [None]
  - FOETAL HEART RATE ABNORMAL [None]
  - FOETAL HEART RATE DECELERATION [None]
  - INFUSION RELATED REACTION [None]
  - NEONATAL DISORDER [None]
  - NERVOUS SYSTEM DISORDER [None]
  - PREMATURE LABOUR [None]
  - SKIN GRAFT [None]
  - ULTRASOUND DOPPLER ABNORMAL [None]
  - UMBILICAL CORD VASCULAR DISORDER [None]
